FAERS Safety Report 10400818 (Version 1)
Quarter: 2014Q3

REPORT INFORMATION
  Report Type: Spontaneous
  Country: US (occurrence: US)
  Receive Date: 20140821
  Receipt Date: 20140821
  Transmission Date: 20150326
  Serious: No
  Sender: FDA-Public Use
  Company Number: US-ASTRAZENECA-2014SE26506

PATIENT
  Age: 64 Year
  Sex: Female
  Weight: 73.9 kg

DRUGS (1)
  1. SYMBICORT [Suspect]
     Active Substance: BUDESONIDE\FORMOTEROL FUMARATE DIHYDRATE
     Dosage: 80 4.5MCG 2 PUFFS BID
     Route: 055

REACTIONS (4)
  - Adverse event [Unknown]
  - Lip swelling [Not Recovered/Not Resolved]
  - Ear infection [Recovered/Resolved with Sequelae]
  - Product package associated injury [Not Recovered/Not Resolved]

NARRATIVE: CASE EVENT DATE: 20140414
